FAERS Safety Report 6473831-4 (Version None)
Quarter: 2009Q4

REPORT INFORMATION
  Report Type: 
  Country: None (occurrence: None)
  Receive Date: 20091204
  Receipt Date: 20091130
  Transmission Date: 20100525
  Serious: Yes (Hospitalization)
  Sender: FDA-Public Use
  Company Number: FR-ROCHE-671588

PATIENT
  Sex: Female

DRUGS (1)
  1. ROCEPHIN [Suspect]
     Route: 042
     Dates: start: 20090915

REACTIONS (7)
  - CHEST DISCOMFORT [None]
  - CHILLS [None]
  - CYTOLYTIC HEPATITIS [None]
  - LIP OEDEMA [None]
  - NAUSEA [None]
  - PLATELET COUNT DECREASED [None]
  - WHITE BLOOD CELL COUNT DECREASED [None]
